FAERS Safety Report 14496730 (Version 1)
Quarter: 2018Q1

REPORT INFORMATION
  Report Type: Spontaneous
  Country: US (occurrence: US)
  Receive Date: 20180206
  Receipt Date: 20180206
  Transmission Date: 20180509
  Serious: Yes (Hospitalization)
  Sender: FDA-Public Use
  Company Number: None

PATIENT
  Sex: Male

DRUGS (36)
  1. SENNA [Concomitant]
     Active Substance: SENNA LEAF\SENNOSIDES\SENNOSIDES A AND B
  2. SERTRALINE [Concomitant]
     Active Substance: SERTRALINE HYDROCHLORIDE
  3. FLUTICASONE. [Concomitant]
     Active Substance: FLUTICASONE
  4. SENSIPAR [Suspect]
     Active Substance: CINACALCET HYDROCHLORIDE
     Indication: END STAGE RENAL DISEASE
     Route: 048
     Dates: start: 20170512
  5. CLONAZEPAM. [Concomitant]
     Active Substance: CLONAZEPAM
  6. ACETAMINOPHN [Concomitant]
  7. BISACODYL. [Concomitant]
     Active Substance: BISACODYL
  8. TRAZODONE [Concomitant]
     Active Substance: TRAZODONE HYDROCHLORIDE
  9. DOCUSATE SOD [Concomitant]
  10. VITAMIN C [Concomitant]
     Active Substance: ASCORBIC ACID
  11. OXYCODOONE [Concomitant]
  12. OMEPRAZOLE. [Concomitant]
     Active Substance: OMEPRAZOLE
  13. HYDROXYZ HCL [Concomitant]
     Active Substance: HYDROXYZINE HYDROCHLORIDE
  14. LEVOTHYROXIN [Concomitant]
     Active Substance: LEVOTHYROXINE
  15. LISINOPRIL. [Concomitant]
     Active Substance: LISINOPRIL
  16. ATORVASTATIN [Concomitant]
     Active Substance: ATORVASTATIN
  17. RANITIDINE. [Concomitant]
     Active Substance: RANITIDINE
  18. CALCIUM [Concomitant]
     Active Substance: CALCIUM
  19. TAMUSULIN [Concomitant]
  20. VITAMIN D3 [Concomitant]
     Active Substance: CHOLECALCIFEROL
  21. ASPIRIN LOW TAB [Concomitant]
  22. LOPERAMIDE [Concomitant]
     Active Substance: LOPERAMIDE
  23. ACCU-CHEK [Concomitant]
  24. BUMETANIDE. [Concomitant]
     Active Substance: BUMETANIDE
  25. SYNTHROID [Concomitant]
     Active Substance: LEVOTHYROXINE SODIUM
  26. LANTUS [Concomitant]
     Active Substance: INSULIN GLARGINE
  27. ALBUTEROL. [Concomitant]
     Active Substance: ALBUTEROL
  28. DIPHENHYDRAM [Concomitant]
  29. IPRATROPIUM [Concomitant]
     Active Substance: IPRATROPIUM
  30. VH [Concomitant]
  31. LORATADINE. [Concomitant]
     Active Substance: LORATADINE
  32. MUCINEX [Concomitant]
     Active Substance: GUAIFENESIN
  33. PROCHLORPER [Concomitant]
  34. CEPACOL [Concomitant]
     Active Substance: BENZOCAINE
  35. FOLIC ACID. [Concomitant]
     Active Substance: FOLIC ACID
  36. LINZESS [Concomitant]
     Active Substance: LINACLOTIDE

REACTIONS (1)
  - Chest pain [None]
